FAERS Safety Report 7767517-3 (Version None)
Quarter: 2011Q3

REPORT INFORMATION
  Report Type: 
  Country: None (occurrence: None)
  Receive Date: 20110922
  Receipt Date: 20110919
  Transmission Date: 20111222
  Serious: Yes (Death, Hospitalization)
  Sender: FDA-Public Use
  Company Number: IT-JNJFOC-20110901240

PATIENT
  Age: 60 Year
  Sex: Female

DRUGS (10)
  1. DEXAMETHASONE [Suspect]
     Indication: MULTIPLE MYELOMA
     Route: 048
     Dates: start: 20110615
  2. DEXAMETHASONE [Suspect]
     Route: 065
  3. LANSOPRAZOLE [Concomitant]
     Indication: GASTRITIS PROPHYLAXIS
     Route: 048
  4. REVLIMID [Suspect]
     Indication: MULTIPLE MYELOMA
     Route: 048
     Dates: start: 20110615, end: 20110810
  5. TALAVIR [Concomitant]
     Indication: PROPHYLAXIS
     Route: 048
  6. DEXAMETHASONE DI SODIUM PHOSPHATE [Concomitant]
     Indication: MULTIPLE MYELOMA
     Route: 048
  7. NEORECORMON [Concomitant]
     Indication: ANAEMIA
     Route: 058
  8. VELCADE [Suspect]
     Indication: MULTIPLE MYELOMA
     Route: 065
  9. FILGRASTIM [Concomitant]
     Indication: PANCYTOPENIA
     Route: 058
  10. DOXORUBICIN HYDROCHLORIDE [Suspect]
     Indication: MULTIPLE MYELOMA
     Route: 042

REACTIONS (2)
  - PANCREATITIS ACUTE [None]
  - DISEASE PROGRESSION [None]
